FAERS Safety Report 5207109-3 (Version None)
Quarter: 2007Q1

REPORT INFORMATION
  Report Type: 
  Country: None (occurrence: None)
  Receive Date: 20070112
  Receipt Date: 20070105
  Transmission Date: 20070707
  Serious: Yes (Disabling)
  Sender: FDA-Public Use
  Company Number: IN-BAXTER-2007BH000164

PATIENT
  Sex: Female

DRUGS (1)
  1. LIDOCAINE [Suspect]
     Indication: ANAESTHESIA
     Dosage: DOSE UNIT:UNKNOWN
     Route: 028

REACTIONS (3)
  - DEMYELINATION [None]
  - DRUG ADMINISTRATION ERROR [None]
  - SYRINGOMYELIA [None]
